FAERS Safety Report 5787082-X (Version None)
Quarter: 2008Q2

REPORT INFORMATION
  Report Type: 
  Country: None (occurrence: None)
  Receive Date: 20080625
  Receipt Date: 20080620
  Transmission Date: 20081010
  Serious: Yes (Death, Life-Threatening, Hospitalization)
  Sender: FDA-Public Use
  Company Number: GB-RANBAXY-2007RR-07809

PATIENT

DRUGS (3)
  1. ACETAMINOPHEN [Suspect]
     Dosage: 50 G, QD
     Route: 048
  2. CINNARIZINE [Suspect]
     Indication: INTENTIONAL OVERDOSE
     Dosage: 1.125 G, QD
     Route: 048
  3. ASPIRIN [Suspect]
     Dosage: 3.15 G, QD
     Route: 048

REACTIONS (16)
  - ACUTE RESPIRATORY DISTRESS SYNDROME [None]
  - AGITATION [None]
  - ALANINE AMINOTRANSFERASE INCREASED [None]
  - BLOOD BILIRUBIN INCREASED [None]
  - BLOOD GLUCOSE FLUCTUATION [None]
  - CONFUSIONAL STATE [None]
  - DEPRESSED LEVEL OF CONSCIOUSNESS [None]
  - DRUG TOXICITY [None]
  - INTENTIONAL OVERDOSE [None]
  - INTERNATIONAL NORMALISED RATIO INCREASED [None]
  - LACTIC ACIDOSIS [None]
  - MULTI-ORGAN FAILURE [None]
  - PROTHROMBIN TIME ABNORMAL [None]
  - RENAL FAILURE ACUTE [None]
  - SHOCK [None]
  - THERAPEUTIC AGENT TOXICITY [None]
